FAERS Safety Report 8089462-9 (Version None)
Quarter: 2012Q1

REPORT INFORMATION
  Report Type: 
  Country: None (occurrence: None)
  Receive Date: 20120128
  Receipt Date: 20110628
  Transmission Date: 20120608
  Serious: No
  Sender: FDA-Public Use
  Company Number: US-ABBOTT-11P-163-0834904-00

PATIENT
  Age: 52 Year
  Sex: Female

DRUGS (7)
  1. HUMIRA [Suspect]
     Indication: ANKYLOSING SPONDYLITIS
     Dates: start: 20110519
  2. TRAMADOL HCL [Concomitant]
     Indication: BACK PAIN
     Dosage: 40MG EVERY 6 HOURS AS REQUIRED
  3. UNKNOWN BLOOD PRESSURE MEDICATION [Concomitant]
     Indication: PRODUCT USED FOR UNKNOWN INDICATION
  4. ACYCLOVIR [Concomitant]
     Indication: ORAL HERPES
  5. POTASSIUM [Concomitant]
     Indication: BLOOD POTASSIUM DECREASED
  6. ARMODAFINIL [Concomitant]
     Indication: FUNGAL INFECTION
  7. METHOTREXATE [Concomitant]
     Indication: PRODUCT USED FOR UNKNOWN INDICATION
     Dosage: IN CONJUCTION WITH HUMIRA PEN

REACTIONS (6)
  - COUGH [None]
  - PARAESTHESIA [None]
  - CHEST PAIN [None]
  - OEDEMA PERIPHERAL [None]
  - PRODUCTIVE COUGH [None]
  - RESPIRATORY TRACT CONGESTION [None]
